FAERS Safety Report 21889579 (Version 3)
Quarter: 2023Q1

REPORT INFORMATION
  Report Type: Report from Study
  Country: ES (occurrence: ES)
  Receive Date: 20230120
  Receipt Date: 20230125
  Transmission Date: 20230417
  Serious: Yes (Other)
  Sender: FDA-Public Use
  Company Number: ES-ABBVIE-4275971

PATIENT
  Age: 76 Year
  Sex: Male

DRUGS (6)
  1. CARBIDOPA\LEVODOPA [Suspect]
     Active Substance: CARBIDOPA\LEVODOPA
     Indication: Parkinson^s disease
     Route: 050
     Dates: start: 20190529
  2. CARBIDOPA\LEVODOPA [Suspect]
     Active Substance: CARBIDOPA\LEVODOPA
  3. RIVOTRIL [Concomitant]
     Active Substance: CLONAZEPAM
     Indication: Product used for unknown indication
     Dosage: TAKING AGAIN
  4. RIVOTRIL [Concomitant]
     Active Substance: CLONAZEPAM
     Indication: Product used for unknown indication
  5. CLOMETHIAZOLE [Concomitant]
     Active Substance: CLOMETHIAZOLE
     Indication: Product used for unknown indication
  6. TRAZODONE HYDROCHLORIDE [Suspect]
     Active Substance: TRAZODONE HYDROCHLORIDE
     Indication: Insomnia
     Dosage: 0-0-1
     Route: 048

REACTIONS (3)
  - Restlessness [Not Recovered/Not Resolved]
  - Insomnia [Not Recovered/Not Resolved]
  - Incontinence [Not Recovered/Not Resolved]

NARRATIVE: CASE EVENT DATE: 20190529
